FAERS Safety Report 6930173-8 (Version None)
Quarter: 2010Q3

REPORT INFORMATION
  Report Type: 
  Country: None (occurrence: None)
  Receive Date: 20100818
  Receipt Date: 20100806
  Transmission Date: 20110219
  Serious: Yes (Death, Other)
  Sender: FDA-Public Use
  Company Number: JP-PFIZER INC-2010081996

PATIENT
  Age: 73 Year
  Sex: Female
  Weight: 31.2 kg

DRUGS (23)
  1. LINEZOLID [Suspect]
     Indication: ENTEROCOCCAL INFECTION
     Dosage: UNK
     Route: 048
     Dates: start: 20090817, end: 20090830
  2. VANCOMYCIN HYDROCHLORIDE [Concomitant]
     Indication: DEVICE RELATED INFECTION
     Dosage: UNK
     Route: 041
     Dates: end: 20090804
  3. MEROPEN [Concomitant]
     Indication: PYELONEPHRITIS
     Dosage: UNK
     Route: 041
     Dates: end: 20090903
  4. PRIMPERAN TAB [Concomitant]
     Dosage: UNK
     Route: 042
     Dates: start: 20090728, end: 20090814
  5. ESPO [Concomitant]
     Indication: NEPHROGENIC ANAEMIA
     Dosage: UNK
     Route: 003
     Dates: start: 20090812, end: 20090826
  6. ELCITONIN [Concomitant]
     Indication: HYPERKALAEMIA
     Dosage: UNK
     Route: 042
     Dates: start: 20090818, end: 20090820
  7. GRAN [Concomitant]
     Indication: NEUTROPHIL COUNT DECREASED
     Dosage: UNK
     Route: 042
     Dates: start: 20090814, end: 20090903
  8. FOSCAVIR [Concomitant]
     Dosage: UNK
     Route: 041
     Dates: end: 20090831
  9. SOLU-MEDROL [Concomitant]
     Dosage: UNK
     Route: 042
     Dates: start: 20090819, end: 20090821
  10. FENTANYL [Concomitant]
     Indication: ANALGESIC THERAPY
     Dosage: UNK
     Route: 042
     Dates: start: 20090711, end: 20090903
  11. GANCICLOVIR [Concomitant]
     Indication: CYTOMEGALOVIRUS INFECTION
     Dosage: UNK
     Route: 042
     Dates: start: 20090708, end: 20090813
  12. MEDROL [Concomitant]
     Dosage: UNK
     Route: 048
     Dates: start: 20090721, end: 20090903
  13. ADEROXAL [Concomitant]
     Dosage: UNK
     Route: 048
     Dates: start: 20090729, end: 20090903
  14. VFEND [Concomitant]
     Indication: FUNGAL INFECTION
     Dosage: UNK
     Route: 048
     Dates: start: 20090728, end: 20090901
  15. COTRIM [Concomitant]
     Indication: PNEUMOCYSTIS JIROVECI PNEUMONIA
     Dosage: UNK
     Route: 048
     Dates: start: 20090729, end: 20090831
  16. ZITHROMAC [Concomitant]
     Indication: PNEUMONIA
     Dosage: UNK
     Route: 048
     Dates: start: 20090731, end: 20090809
  17. FLAGYL [Concomitant]
     Indication: CLOSTRIDIUM DIFFICILE COLITIS
     Dosage: UNK
     Route: 048
     Dates: start: 20090805, end: 20090815
  18. KAYWAN [Concomitant]
     Dosage: UNK
     Route: 048
     Dates: start: 20090811, end: 20090823
  19. CALONAL [Concomitant]
     Indication: PYREXIA
     Dosage: UNK
     Route: 048
     Dates: start: 20090709, end: 20090823
  20. ISCOTIN [Concomitant]
     Indication: TUBERCULOSIS
     Dosage: UNK
     Route: 048
     Dates: start: 20090710, end: 20090901
  21. PYRAMIDE [Concomitant]
     Indication: TUBERCULOSIS
     Dosage: UNK
     Route: 048
     Dates: end: 20090828
  22. EBUTOL [Concomitant]
     Indication: TUBERCULOSIS
     Dosage: UNK
     Route: 048
     Dates: start: 20090710, end: 20090901
  23. TAKEPRON [Concomitant]
     Indication: GASTRIC ULCER
     Dosage: UNK
     Route: 048
     Dates: start: 20090711, end: 20090903

REACTIONS (3)
  - HISTIOCYTOSIS HAEMATOPHAGIC [None]
  - METABOLIC ACIDOSIS [None]
  - RENAL IMPAIRMENT [None]
